FAERS Safety Report 11350469 (Version 10)
Quarter: 2016Q2

REPORT INFORMATION
  Report Type: Spontaneous
  Country: US (occurrence: US)
  Receive Date: 20150807
  Receipt Date: 20160526
  Transmission Date: 20160815
  Serious: Yes (Other)
  Sender: FDA-Public Use
  Company Number: US-PFIZER INC-2015255995

PATIENT
  Age: 66 Year
  Sex: Female
  Weight: 55.78 kg

DRUGS (6)
  1. IBRANCE [Suspect]
     Active Substance: PALBOCICLIB
     Indication: BREAST CANCER STAGE IV
     Dosage: 125 MG, CYCLIC (DAILY, DAY 1-21 Q 28)
     Route: 048
     Dates: start: 20150714
  2. IBRANCE [Suspect]
     Active Substance: PALBOCICLIB
     Dosage: 75 MG, CYCLIC (DAILY, DAY 1-21 Q 28 DAYS)
     Route: 048
     Dates: start: 20151107
  3. IBRANCE [Suspect]
     Active Substance: PALBOCICLIB
     Dosage: 75 MG, CYCLIC(DAYS 1-21 Q28 DAYS)
     Route: 048
     Dates: end: 20160519
  4. IBRANCE [Suspect]
     Active Substance: PALBOCICLIB
     Dosage: 75 MG, CYCLIC (DAY 1-21 Q 28 DAYS)
     Route: 048
     Dates: start: 20150714
  5. IBRANCE [Suspect]
     Active Substance: PALBOCICLIB
     Dosage: 75 MG, CYCLIC (DAY 1-21 Q 28 DAYS)
     Route: 048
     Dates: start: 20150714, end: 20160504
  6. LETROZOLE. [Suspect]
     Active Substance: LETROZOLE
     Dosage: UNK

REACTIONS (15)
  - Nausea [Unknown]
  - Abdominal pain upper [Not Recovered/Not Resolved]
  - Pain [Unknown]
  - Emotional disorder [Unknown]
  - Neutropenia [Unknown]
  - Breast cancer stage IV [Unknown]
  - White blood cell count decreased [Unknown]
  - Malaise [Unknown]
  - Lip blister [Unknown]
  - Decreased appetite [Unknown]
  - Disease progression [Unknown]
  - Muscle spasms [Unknown]
  - Stomatitis [Unknown]
  - Fatigue [Unknown]
  - Constipation [Unknown]

NARRATIVE: CASE EVENT DATE: 2015
